FAERS Safety Report 19956746 (Version 2)
Quarter: 2021Q4

REPORT INFORMATION
  Report Type: Report from Study
  Country: IT (occurrence: IT)
  Receive Date: 20211014
  Receipt Date: 20211019
  Transmission Date: 20220303
  Serious: Yes (Hospitalization, Other)
  Sender: FDA-Public Use
  Company Number: IT-AMGEN-ITACT2021132052

PATIENT
  Age: 65 Year
  Sex: Male
  Weight: 66 kg

DRUGS (12)
  1. PANITUMUMAB [Suspect]
     Active Substance: PANITUMUMAB
     Indication: Rectal cancer
     Dosage: UNK (CYCLE 1)
     Route: 042
  2. PANITUMUMAB [Suspect]
     Active Substance: PANITUMUMAB
     Dosage: 396 MILLIGRAM (CYCLE 5)
     Route: 042
     Dates: start: 20210802, end: 20210802
  3. IRINOTECAN [Suspect]
     Active Substance: IRINOTECAN
     Indication: Rectal cancer
     Dosage: UNK  (CYCLE 1)
     Route: 042
  4. IRINOTECAN [Suspect]
     Active Substance: IRINOTECAN
     Dosage: 325 MILLIGRAM (CYCLE 5)
     Route: 042
     Dates: start: 20210802, end: 20210802
  5. LEUCOVORIN [Suspect]
     Active Substance: LEUCOVORIN
     Indication: Rectal cancer
     Dosage: UNK  (CYCLE 1)
     Route: 042
  6. LEUCOVORIN [Suspect]
     Active Substance: LEUCOVORIN
     Dosage: 360 MILLIGRAM (CYCLE 5)
     Route: 042
     Dates: start: 20210802, end: 20210802
  7. FLUOROURACIL [Suspect]
     Active Substance: FLUOROURACIL
     Indication: Rectal cancer
     Dosage: UNK  (CYCLE 1)
     Route: 040
  8. FLUOROURACIL [Suspect]
     Active Substance: FLUOROURACIL
     Dosage: 720 MILLIGRAM (CYCLE 5)
     Route: 040
     Dates: start: 20210802, end: 20210802
  9. FLUOROURACIL [Suspect]
     Active Substance: FLUOROURACIL
     Dosage: UNK  (CYCLE 1)
     Route: 042
  10. FLUOROURACIL [Suspect]
     Active Substance: FLUOROURACIL
     Dosage: 4340 MILLIGRAM  (CYCLE 5)
     Route: 042
     Dates: start: 20210802, end: 20210804
  11. IDALMAN [Concomitant]
     Indication: Hypertension
     Dosage: 20 MILLIGRAM, QD
     Route: 048
     Dates: start: 2018
  12. MOVICOL [Concomitant]
     Active Substance: POLYETHYLENE GLYCOL 3350\POTASSIUM CHLORIDE\SODIUM BICARBONATE\SODIUM CHLORIDE
     Indication: Constipation
     Dosage: 13.8 MILLIGRAM, AS NECESSARY
     Route: 048
     Dates: start: 20210520

REACTIONS (1)
  - Myocarditis [Recovered/Resolved]

NARRATIVE: CASE EVENT DATE: 20210824
